FAERS Safety Report 25082815 (Version 1)
Quarter: 2025Q1

REPORT INFORMATION
  Report Type: Report from Study
  Country: US (occurrence: US)
  Receive Date: 20250317
  Receipt Date: 20250317
  Transmission Date: 20250409
  Serious: Yes (Death, Other)
  Sender: TAKEDA
  Company Number: US-TAKEDA-2024TUS129931

PATIENT
  Age: 76 Year
  Sex: Male

DRUGS (11)
  1. IXAZOMIB [Suspect]
     Active Substance: IXAZOMIB
     Indication: Plasma cell myeloma
  2. ASPIRIN [Concomitant]
     Active Substance: ASPIRIN
  3. CITALOPRAM [Concomitant]
     Active Substance: CITALOPRAM
  4. DEXAMETHASONE [Concomitant]
     Active Substance: DEXAMETHASONE
  5. FLUCONAZOLE [Concomitant]
     Active Substance: FLUCONAZOLE
  6. GLIPIZIDE [Concomitant]
     Active Substance: GLIPIZIDE
  7. LANTUS [Concomitant]
     Active Substance: INSULIN GLARGINE
  8. LOVASTATIN [Concomitant]
     Active Substance: LOVASTATIN
  9. MOEXIPRIL [Concomitant]
     Active Substance: MOEXIPRIL
  10. OMEPRAZOLE [Concomitant]
     Active Substance: OMEPRAZOLE
  11. ONDANSETRON [Concomitant]
     Active Substance: ONDANSETRON

REACTIONS (2)
  - Death [Fatal]
  - Nervousness [Recovered/Resolved]

NARRATIVE: CASE EVENT DATE: 20241225
